FAERS Safety Report 25302271 (Version 2)
Quarter: 2025Q2

REPORT INFORMATION
  Report Type: Spontaneous
  Country: GB (occurrence: GB)
  Receive Date: 20250512
  Receipt Date: 20250515
  Transmission Date: 20250717
  Serious: Yes (Other)
  Sender: AMGEN
  Company Number: GB-BEH-2025204129

PATIENT

DRUGS (1)
  1. TAVNEOS [Suspect]
     Active Substance: AVACOPAN
     Indication: Product used for unknown indication
     Route: 065

REACTIONS (1)
  - Drug reaction with eosinophilia and systemic symptoms [Unknown]
